FAERS Safety Report 8191769-1 (Version None)
Quarter: 2012Q1

REPORT INFORMATION
  Report Type: 
  Country: None (occurrence: None)
  Receive Date: 20120307
  Receipt Date: 20120228
  Transmission Date: 20120608
  Serious: Yes (Hospitalization)
  Sender: FDA-Public Use
  Company Number: FR-ASTRAZENECA-2012SE14515

PATIENT
  Age: 20756 Day
  Sex: Male

DRUGS (7)
  1. PLAVIX [Suspect]
     Route: 048
     Dates: start: 20120106, end: 20120123
  2. ASPIRIN [Suspect]
     Route: 048
     Dates: start: 20120106, end: 20120123
  3. DILTIAZEM HCL [Suspect]
     Route: 048
     Dates: start: 20120106, end: 20120123
  4. CRESTOR [Suspect]
     Indication: ARTERIOSCLEROSIS CORONARY ARTERY
     Route: 048
     Dates: start: 20120106, end: 20120123
  5. RAMIPRIL [Suspect]
     Route: 048
     Dates: start: 20120106, end: 20120123
  6. IKOREL [Suspect]
     Route: 048
     Dates: start: 20120106, end: 20120123
  7. LASIX [Suspect]
     Route: 048
     Dates: start: 20120106, end: 20120123

REACTIONS (1)
  - DRUG ERUPTION [None]
